FAERS Safety Report 5156913-9 (Version None)
Quarter: 2006Q4

REPORT INFORMATION
  Report Type: 
  Country: None (occurrence: None)
  Receive Date: 20060918
  Receipt Date: 20051215
  Transmission Date: 20070319
  Serious: Yes (Hospitalization)
  Sender: FDA-Public Use
  Company Number: US-JNJFOC-20051204388

PATIENT
  Age: 62 Year
  Sex: Male
  Weight: 131.5431 kg

DRUGS (14)
  1. TOPAMAX [Suspect]
     Indication: NEUROPATHY
     Dosage: 100 MG, 1 IN 1 DAY, ORAL
     Route: 048
     Dates: start: 20030101
  2. LANTAS (INSULIN GLARGINE) [Concomitant]
  3. HUMALOG [Concomitant]
  4. SINEMET [Concomitant]
  5. NEURONTIN [Concomitant]
  6. ZOLOFT [Concomitant]
  7. BETAPACE [Concomitant]
  8. ZESTRIL [Concomitant]
  9. LIPITOR [Concomitant]
  10. POTASSIUM (POTASSIUM) [Concomitant]
  11. AMITRIPTYLINE HCL [Concomitant]
  12. LASIX [Concomitant]
  13. LORATAB (LORACARBEF) [Concomitant]
  14. ACTOSE (PIOGLITAZONE) [Concomitant]

REACTIONS (2)
  - BLOOD PRESSURE ORTHOSTATIC [None]
  - LOSS OF CONSCIOUSNESS [None]
